FAERS Safety Report 23733973 (Version 1)
Quarter: 2024Q2

REPORT INFORMATION
  Report Type: Report from Study
  Country: US (occurrence: None)
  Receive Date: 20240412
  Receipt Date: 20240412
  Transmission Date: 20240716
  Serious: Yes (Death)
  Sender: FDA-Public Use
  Company Number: 2022A190955

PATIENT
  Sex: Male
  Weight: 90.7 kg

DRUGS (14)
  1. CALQUENCE [Suspect]
     Active Substance: ACALABRUTINIB
     Indication: Chronic lymphocytic leukaemia
     Route: 048
  2. EZETIMIBE [Concomitant]
     Active Substance: EZETIMIBE
  3. ISOSORBIDE [Concomitant]
     Active Substance: ISOSORBIDE
  4. PRASUGREL [Concomitant]
     Active Substance: PRASUGREL
  5. GLIMEPIRIDE [Concomitant]
     Active Substance: GLIMEPIRIDE
  6. CARVEDILOL [Concomitant]
     Active Substance: CARVEDILOL
  7. ROPINIROLE [Concomitant]
     Active Substance: ROPINIROLE
  8. GABAPENTIN [Concomitant]
     Active Substance: GABAPENTIN
  9. ALLOPURINOL [Concomitant]
     Active Substance: ALLOPURINOL
  10. TAMSULOSIN [Concomitant]
     Active Substance: TAMSULOSIN
  11. ATORVASTATIN [Concomitant]
     Active Substance: ATORVASTATIN
  12. VITAMINS [Concomitant]
     Active Substance: VITAMINS
  13. FAMOTIDINE [Concomitant]
     Active Substance: FAMOTIDINE
  14. BUMETANIDE [Concomitant]
     Active Substance: BUMETANIDE

REACTIONS (1)
  - Pneumonia [Fatal]
